FAERS Safety Report 19891488 (Version 5)
Quarter: 2021Q4

REPORT INFORMATION
  Report Type: Spontaneous
  Country: JP (occurrence: JP)
  Receive Date: 20210928
  Receipt Date: 20211230
  Transmission Date: 20220303
  Serious: Yes (Hospitalization)
  Sender: FDA-Public Use
  Company Number: JP-JNJFOC-20210938236

PATIENT
  Age: 79 Year
  Sex: Female
  Weight: 43 kg

DRUGS (10)
  1. TRACLEER [Suspect]
     Active Substance: BOSENTAN
     Indication: Pulmonary hypertension
     Dosage: IN THE MORNING AND EVENING
     Route: 048
  2. RISPERDAL [Suspect]
     Active Substance: RISPERIDONE
     Indication: Psychotic disorder
     Dosage: IN THE EVENING
     Route: 048
  3. WARFARIN POTASSIUM [Concomitant]
     Active Substance: WARFARIN POTASSIUM
     Indication: Pulmonary hypertension
     Dosage: IN THE MORNING
     Route: 048
  4. FUROSEMIDE [Concomitant]
     Active Substance: FUROSEMIDE
     Indication: Pulmonary hypertension
     Dosage: 40 MG IN THE MORNING AND 20 MG IN THE AFTERNOON
     Route: 048
  5. LANSOPRAZOLE [Concomitant]
     Active Substance: LANSOPRAZOLE
     Indication: Gastrooesophageal reflux disease
     Route: 048
  6. SPIRONOLACTONE [Concomitant]
     Active Substance: SPIRONOLACTONE
     Indication: Pulmonary hypertension
     Dosage: IN THE MORNING
     Route: 048
  7. REVATIO [Concomitant]
     Active Substance: SILDENAFIL CITRATE
     Indication: Pulmonary hypertension
     Dosage: IN THE MORNING AND EVENING
     Route: 048
  8. ZYPREXA [Concomitant]
     Active Substance: OLANZAPINE
     Indication: Psychotic disorder
     Dosage: IN THE EVENING
     Route: 048
  9. ROZEREM [Concomitant]
     Active Substance: RAMELTEON
     Indication: Psychotic disorder
     Route: 048
  10. LEVOTHYROXINE SODIUM [Concomitant]
     Active Substance: LEVOTHYROXINE SODIUM
     Indication: Hypothyroidism
     Route: 048

REACTIONS (5)
  - Cardiac failure chronic [Recovering/Resolving]
  - Pulmonary hypertension [Recovering/Resolving]
  - Product use in unapproved indication [Unknown]
  - Off label use [Unknown]
  - Inappropriate schedule of product administration [Unknown]

NARRATIVE: CASE EVENT DATE: 20210901
